FAERS Safety Report 8500144-9 (Version None)
Quarter: 2012Q3

REPORT INFORMATION
  Report Type: 
  Country: None (occurrence: None)
  Receive Date: 20120710
  Receipt Date: 20120703
  Transmission Date: 20120928
  Serious: Yes (Hospitalization, Other)
  Sender: FDA-Public Use
  Company Number: US-PFIZER INC-2009294189

PATIENT
  Sex: Female
  Weight: 90.703 kg

DRUGS (1)
  1. LYRICA [Suspect]
     Indication: FIBROMYALGIA
     Dosage: UNK
     Route: 048

REACTIONS (8)
  - FLUID RETENTION [None]
  - COMA [None]
  - SEDATION [None]
  - BODY HEIGHT DECREASED [None]
  - MALAISE [None]
  - HYPERSENSITIVITY [None]
  - CONFUSIONAL STATE [None]
  - WEIGHT INCREASED [None]
